FAERS Safety Report 17419109 (Version 1)
Quarter: 2020Q1

REPORT INFORMATION
  Report Type: Report from Study
  Country: CA (occurrence: CA)
  Receive Date: 20200214
  Receipt Date: 20200214
  Transmission Date: 20200409
  Serious: Yes (Other)
  Sender: FDA-Public Use
  Company Number: CA-JNJFOC-20200209505

PATIENT
  Age: 67 Year
  Sex: Female

DRUGS (1)
  1. STELARA [Suspect]
     Active Substance: USTEKINUMAB
     Indication: CROHN^S DISEASE
     Route: 058

REACTIONS (6)
  - Off label use [Unknown]
  - Blood pressure increased [Unknown]
  - Anaemia [Unknown]
  - Product use issue [Unknown]
  - Frequent bowel movements [Unknown]
  - Headache [Unknown]

NARRATIVE: CASE EVENT DATE: 2020
